FAERS Safety Report 8171001-5 (Version None)
Quarter: 2012Q1

REPORT INFORMATION
  Report Type: 
  Country: None (occurrence: None)
  Receive Date: 20120228
  Receipt Date: 20120221
  Transmission Date: 20120608
  Serious: Yes (Hospitalization, Other)
  Sender: FDA-Public Use
  Company Number: US-B.I. PHARMACEUTICALS,INC./RIDGEFIELD-2011-BP-19456BP

PATIENT
  Sex: Male

DRUGS (21)
  1. TOPROL-XL [Concomitant]
     Indication: MYOCARDIAL INFARCTION
  2. PROTONIX [Concomitant]
     Indication: ULCER HAEMORRHAGE
  3. HUMALOG [Concomitant]
     Indication: DIABETES MELLITUS
     Route: 058
  4. TOPROL-XL [Concomitant]
     Indication: ATRIAL FIBRILLATION
     Dosage: 50 MG
     Route: 048
     Dates: start: 19970101
  5. MULTI-VITAMINS [Concomitant]
     Indication: PROPHYLAXIS
  6. PROSCAR [Concomitant]
     Indication: BENIGN PROSTATIC HYPERPLASIA
  7. LASIX [Concomitant]
     Indication: HYPERTENSION
     Dosage: 40 MG
     Route: 048
     Dates: start: 19950101
  8. PRADAXA [Suspect]
     Indication: ATRIAL FIBRILLATION
     Dosage: 150 MG
     Route: 048
     Dates: start: 20110501, end: 20110808
  9. TOPROL-XL [Concomitant]
     Indication: HYPERTENSION
  10. PROSCAR [Concomitant]
     Indication: PROSTATOMEGALY
     Route: 048
     Dates: start: 20050101
  11. JANUMET [Concomitant]
     Indication: DIABETES MELLITUS
     Route: 048
     Dates: start: 20100101
  12. POTASSIUM CHLORIDE [Concomitant]
     Indication: BLOOD POTASSIUM DECREASED
     Dosage: 20 MEQ
     Route: 048
     Dates: start: 19960101
  13. MULTI-VITAMINS [Concomitant]
     Indication: ROUTINE HEALTH MAINTENANCE
     Route: 048
  14. VITAMIN-MINERAL COMPOUND TAB [Concomitant]
     Indication: ROUTINE HEALTH MAINTENANCE
     Route: 048
  15. CALCITRIOL [Concomitant]
     Indication: PROPHYLAXIS
     Route: 048
  16. PRINIVIL [Concomitant]
     Indication: HYPERTENSION
     Dosage: 20 MG
     Route: 048
     Dates: start: 19970101
  17. NOVOLIN 70/30 [Concomitant]
     Indication: DIABETES MELLITUS
     Dosage: 10 U
     Route: 058
  18. ASPIRIN [Concomitant]
     Indication: ATRIAL FIBRILLATION
     Dosage: 81 MG
     Route: 048
     Dates: start: 19960101
  19. ZOCOR [Concomitant]
     Indication: BLOOD CHOLESTEROL INCREASED
     Dosage: 20 MG
     Route: 048
     Dates: start: 19970101
  20. PROTONIX [Concomitant]
     Indication: GASTRIC ULCER
     Dosage: 40 MG
     Route: 048
     Dates: start: 20080101
  21. ALDACTONE [Concomitant]
     Indication: HYPERTENSION
     Dosage: 25 MG
     Route: 048
     Dates: start: 19970101

REACTIONS (3)
  - CARDIAC FAILURE CONGESTIVE [None]
  - NOCTURNAL DYSPNOEA [None]
  - GASTROINTESTINAL ULCER HAEMORRHAGE [None]
